FAERS Safety Report 24645290 (Version 2)
Quarter: 2024Q4

REPORT INFORMATION
  Report Type: Spontaneous
  Country: RU (occurrence: RU)
  Receive Date: 20241121
  Receipt Date: 20241126
  Transmission Date: 20250115
  Serious: Yes (Other)
  Sender: SANDOZ
  Company Number: RU-002147023-NVSC2024RU222144

PATIENT
  Sex: Female

DRUGS (5)
  1. FULVESTRANT [Suspect]
     Active Substance: FULVESTRANT
     Indication: Product used for unknown indication
     Dosage: 500 MG (ON DAYS 1,15 AND 29)
     Route: 030
     Dates: start: 202210
  2. PACLITAXEL [Suspect]
     Active Substance: PACLITAXEL
     Dosage: 80 MG/M2, QW
     Route: 040
     Dates: start: 202205
  3. PACLITAXEL [Suspect]
     Active Substance: PACLITAXEL
     Indication: Product used for unknown indication
     Dosage: 80 MG/M2, QW
     Route: 042
  4. PALBOCICLIB [Suspect]
     Active Substance: PALBOCICLIB
     Indication: Product used for unknown indication
     Dosage: 125 MG, ON DAYS  1?21  FOLLOWED  BY 7-DAY  PAUSE
     Route: 048
     Dates: start: 202210
  5. ZOLEDRONIC ACID [Suspect]
     Active Substance: ZOLEDRONIC ACID
     Indication: Breast cancer
     Dosage: 4 MG, Q4W
     Route: 042
     Dates: start: 202205

REACTIONS (5)
  - Metastases to liver [Unknown]
  - Breast cancer [Recovering/Resolving]
  - Disease progression [Recovering/Resolving]
  - Anaemia [Unknown]
  - Malignant neoplasm progression [Recovering/Resolving]

NARRATIVE: CASE EVENT DATE: 20230201
